FAERS Safety Report 12633810 (Version 5)
Quarter: 2018Q1

REPORT INFORMATION
  Report Type: Report from Study
  Country: GB (occurrence: GB)
  Receive Date: 20160809
  Receipt Date: 20180322
  Transmission Date: 20180508
  Serious: Yes (Other)
  Sender: FDA-Public Use
  Company Number: GB-BRISTOL-MYERS SQUIBB COMPANY-BMS-2016-063940

PATIENT
  Age: 53 Year
  Sex: Female

DRUGS (1)
  1. ABATACEPT [Suspect]
     Active Substance: ABATACEPT
     Indication: RHEUMATOID ARTHRITIS
     Dosage: 125 MG, QWK
     Route: 058
     Dates: start: 20140829

REACTIONS (5)
  - Toothache [Unknown]
  - Pain in jaw [Unknown]
  - Knee arthroplasty [Unknown]
  - Ear pain [Unknown]
  - Gingivitis [Unknown]

NARRATIVE: CASE EVENT DATE: 20160719
